FAERS Safety Report 4570250-2 (Version None)
Quarter: 2005Q1

REPORT INFORMATION
  Report Type: 
  Country: None (occurrence: None)
  Receive Date: 20050127
  Receipt Date: 20050127
  Transmission Date: 20050727
  Serious: Yes (Other)
  Sender: FDA-Public Use
  Company Number: None

PATIENT
  Sex: Male
  Weight: 106.1417 kg

DRUGS (13)
  1. ESTRAMUSTINE   140 MG   COMMERCIAL [Suspect]
     Indication: PROSTATE CANCER
     Dosage: 140MG   TWICE DAILY ORAL
     Route: 048
     Dates: start: 20041130, end: 20050104
  2. DOCETAXEL  80MG/2ML   COMMERCIAL [Suspect]
     Indication: PROSTATE CANCER
     Dosage: 40MG/M2  INTRAVENOUS
     Route: 042
     Dates: start: 20041201, end: 20050105
  3. GLUCOPHAGE [Concomitant]
  4. MONOPRIL [Concomitant]
  5. AMARYL [Concomitant]
  6. NEXIUM [Concomitant]
  7. TYLENOL [Concomitant]
  8. PULMICORT [Concomitant]
  9. COMBIVENT [Concomitant]
  10. ALBUTEROL [Concomitant]
  11. HYDROCODONE [Concomitant]
  12. LIPITOR [Concomitant]
  13. OXYCONTIN [Concomitant]

REACTIONS (2)
  - ALANINE AMINOTRANSFERASE ABNORMAL [None]
  - ASPARTATE AMINOTRANSFERASE ABNORMAL [None]
